FAERS Safety Report 17056835 (Version 1)
Quarter: 2019Q4

REPORT INFORMATION
  Report Type: Spontaneous
  Country: GB (occurrence: GB)
  Receive Date: 20191121
  Receipt Date: 20191121
  Transmission Date: 20200122
  Serious: Yes (Other)
  Sender: FDA-Public Use
  Company Number: GB-TEVA-2018-GB-924966

PATIENT
  Age: 41 Year
  Sex: Female

DRUGS (3)
  1. CLARITHROMYCIN. [Suspect]
     Active Substance: CLARITHROMYCIN
     Indication: CYST
     Route: 065
     Dates: start: 20180526, end: 20180528
  2. KELP [Concomitant]
     Active Substance: KELP
     Route: 065
  3. IRON [Concomitant]
     Active Substance: IRON
     Route: 065

REACTIONS (1)
  - Breast mass [Recovering/Resolving]

NARRATIVE: CASE EVENT DATE: 20180528
